FAERS Safety Report 4412262-5 (Version None)
Quarter: 2004Q3

REPORT INFORMATION
  Report Type: 
  Country: None (occurrence: None)
  Receive Date: 20040727
  Receipt Date: 20040716
  Transmission Date: 20050211
  Serious: Yes (Hospitalization)
  Sender: FDA-Public Use
  Company Number: US-JNJFOC-20040604207

PATIENT
  Age: 65 Year
  Sex: Female

DRUGS (5)
  1. DURAGESIC [Suspect]
     Indication: PAIN
     Dosage: 50 UG/HR, 1 IN 72 HOUR, TRANSDERMAL
     Route: 062
     Dates: start: 20040401
  2. DURAGESIC [Suspect]
     Dosage: 75 UG/HR, TRANSDERMAL
     Route: 062
     Dates: start: 20040709
  3. VALIUM [Concomitant]
  4. TEMAZEPAM [Concomitant]
  5. CODEINE (CODEINE) [Concomitant]

REACTIONS (11)
  - BACK PAIN [None]
  - CHEST PAIN [None]
  - DIARRHOEA [None]
  - IRRITABLE BOWEL SYNDROME [None]
  - MEDICATION ERROR [None]
  - NAUSEA [None]
  - PAIN [None]
  - RENAL DISORDER [None]
  - URINARY TRACT INFECTION [None]
  - VOMITING [None]
  - WEIGHT DECREASED [None]
